FAERS Safety Report 21559719 (Version 5)
Quarter: 2024Q3

REPORT INFORMATION
  Report Type: Report from Study
  Country: JP (occurrence: JP)
  Receive Date: 20221107
  Receipt Date: 20240702
  Transmission Date: 20241017
  Serious: No
  Sender: ARGENX BVBA
  Company Number: JP-ARGENX-2022-ARGX-JP002306

PATIENT
  Age: 45 Year
  Sex: Female
  Weight: 73.4 kg

DRUGS (12)
  1. EFGARTIGIMOD ALFA [Suspect]
     Active Substance: EFGARTIGIMOD ALFA
     Indication: Myasthenia gravis
     Dosage: 730 MG, 1/WEEK
     Route: 042
     Dates: start: 20221019, end: 20221026
  2. PREDNISOLONE [Concomitant]
     Active Substance: PREDNISOLONE
     Indication: Myasthenia gravis
     Dosage: 14 MG
     Route: 048
     Dates: start: 20220915, end: 20221212
  3. PREDNISOLONE [Concomitant]
     Active Substance: PREDNISOLONE
     Dosage: 13 MG/DAY
     Route: 048
     Dates: start: 20221213, end: 20230119
  4. PREDNISOLONE [Concomitant]
     Active Substance: PREDNISOLONE
     Dosage: 12.5 MG/DAY
     Route: 048
     Dates: start: 20230120, end: 20230710
  5. PREDNISOLONE [Concomitant]
     Active Substance: PREDNISOLONE
     Dosage: 11 MG
     Route: 048
     Dates: start: 20230711
  6. CYCLOSPORINE [Concomitant]
     Active Substance: CYCLOSPORINE
     Indication: Myasthenia gravis
     Dosage: 250 MG
     Route: 048
     Dates: start: 20220724, end: 20221226
  7. CYCLOSPORINE [Concomitant]
     Active Substance: CYCLOSPORINE
     Dosage: 200 MG
     Route: 048
     Dates: start: 20221227
  8. ALFAROL [Concomitant]
     Active Substance: ALFACALCIDOL
     Indication: Prophylaxis
     Dosage: 0.5 UG
     Route: 048
     Dates: start: 20221020, end: 20230119
  9. SULFAMETHOXAZOLE\TRIMETHOPRIM [Concomitant]
     Active Substance: SULFAMETHOXAZOLE\TRIMETHOPRIM
     Indication: Prophylaxis
     Dosage: 1 G
     Route: 048
     Dates: start: 20221020
  10. ALENDRONATE [Concomitant]
     Active Substance: ALENDRONATE SODIUM
     Indication: Prophylaxis
     Dosage: 35 MG, 1/WEEK
     Route: 048
     Dates: start: 20230120
  11. SODIUM FERROUS CITRATE [Concomitant]
     Active Substance: SODIUM FERROUS CITRATE
     Indication: Iron deficiency anaemia
     Dosage: 50 MG
     Route: 048
     Dates: start: 20221107, end: 20230119
  12. SHAKUYAKUKANZOTO [Concomitant]
     Active Substance: HERBALS
     Indication: Muscle spasms
     Dosage: 2.5 G
     Route: 048
     Dates: start: 20221101

REACTIONS (1)
  - Therapy cessation [Unknown]

NARRATIVE: CASE EVENT DATE: 20230807
